FAERS Safety Report 10300306 (Version 1)
Quarter: 2014Q3

REPORT INFORMATION
  Report Type: Report from Study
  Country: US (occurrence: US)
  Receive Date: 20140712
  Receipt Date: 20140712
  Transmission Date: 20150326
  Serious: Yes (Other)
  Sender: FDA-Public Use
  Company Number: US-JNJFOC-20140618686

PATIENT
  Sex: Male

DRUGS (1)
  1. NICOTROL [Suspect]
     Active Substance: NICOTINE
     Indication: SMOKING CESSATION THERAPY
     Route: 065

REACTIONS (6)
  - Constipation [Unknown]
  - Vomiting [Unknown]
  - Suicidal behaviour [Unknown]
  - Sleep disorder [Unknown]
  - Abnormal behaviour [Unknown]
  - Agitation [Unknown]
